FAERS Safety Report 14968273 (Version 1)
Quarter: 2018Q2

REPORT INFORMATION
  Report Type: Spontaneous
  Country: US (occurrence: US)
  Receive Date: 20180604
  Receipt Date: 20180604
  Transmission Date: 20180711
  Serious: No
  Sender: FDA-Public Use
  Company Number: US-GLAXOSMITHKLINE-US2018096111

PATIENT
  Sex: Male

DRUGS (1)
  1. VENTOLIN HFA [Suspect]
     Active Substance: ALBUTEROL SULFATE
     Indication: PRODUCT USED FOR UNKNOWN INDICATION
     Dosage: UNK

REACTIONS (7)
  - Ill-defined disorder [Unknown]
  - Back pain [Unknown]
  - Drug effect decreased [Unknown]
  - Intentional overdose [Unknown]
  - Intentional product misuse [Unknown]
  - Dyspnoea [Unknown]
  - Diaphragmatic spasm [Unknown]
